FAERS Safety Report 21923805 (Version 3)
Quarter: 2023Q1

REPORT INFORMATION
  Report Type: Spontaneous
  Country: DE (occurrence: DE)
  Receive Date: 20230130
  Receipt Date: 20230308
  Transmission Date: 20230418
  Serious: Yes (Disabling, Other)
  Sender: FDA-Public Use
  Company Number: DE-BRISTOL-MYERS SQUIBB COMPANY-2023-007039

PATIENT
  Age: 65 Year
  Sex: Female
  Weight: 112 kg

DRUGS (4)
  1. OXALIPLATIN [Suspect]
     Active Substance: OXALIPLATIN
     Indication: Gastric cancer
     Dosage: 183 MG, (FREQ: 14)
     Route: 042
     Dates: start: 20220316
  2. FLUOROURACIL [Suspect]
     Active Substance: FLUOROURACIL
     Indication: Gastric cancer
     Dosage: 5642 MG, FREQ-14 (ROUTE- IV PUMPE)
     Route: 065
     Dates: start: 20220316
  3. OPDIVO [Suspect]
     Active Substance: NIVOLUMAB
     Indication: Gastric cancer
     Dosage: 240 MG, DAYS: 14 DAYS
     Route: 042
     Dates: start: 20220316, end: 20220630
  4. PREDNISONE [Concomitant]
     Active Substance: PREDNISONE
     Indication: Product used for unknown indication
     Dosage: DAILY, PREDNISONE 50 MG GALEN TAB
     Route: 048
     Dates: start: 20200512, end: 20200513

REACTIONS (1)
  - Autoimmune hepatitis [Not Recovered/Not Resolved]

NARRATIVE: CASE EVENT DATE: 20220525
